FAERS Safety Report 11318489 (Version 1)
Quarter: 2015Q3

REPORT INFORMATION
  Report Type: Not Available
  Country: US (occurrence: US)
  Receive Date: 20150729
  Receipt Date: 20150729
  Transmission Date: 20151125
  Serious: No
  Sender: FDA-Public Use
  Company Number: US-LUPIN PHARMACEUTICALS INC.-E2B_00002643

PATIENT
  Sex: Male
  Weight: 63.56 kg

DRUGS (1)
  1. LEVETIRACETAM TABLETS USP 1000MG [Suspect]
     Active Substance: LEVETIRACETAM
     Indication: SEIZURE
     Dates: end: 20141020

REACTIONS (1)
  - Dizziness [Recovered/Resolved]
